FAERS Safety Report 20607894 (Version 13)
Quarter: 2024Q2

REPORT INFORMATION
  Report Type: Spontaneous
  Country: US (occurrence: US)
  Receive Date: 20220317
  Receipt Date: 20240404
  Transmission Date: 20240716
  Serious: No
  Sender: FDA-Public Use
  Company Number: US-PFIZER INC-202101442834

PATIENT
  Age: 81 Year
  Sex: Female

DRUGS (3)
  1. EUCRISA [Suspect]
     Active Substance: CRISABOROLE
     Indication: Eczema
     Dosage: (QD (ONCE A DAY) TO ARMS, LEGS, BACK)
     Route: 061
  2. EUCRISA [Suspect]
     Active Substance: CRISABOROLE
     Dosage: UNK, 2X/DAY
     Route: 061
  3. EUCRISA [Suspect]
     Active Substance: CRISABOROLE
     Dosage: APPLY DAILY
     Route: 061

REACTIONS (9)
  - Burning sensation [Unknown]
  - Sleep disorder due to general medical condition, insomnia type [Unknown]
  - Restlessness [Unknown]
  - COVID-19 [Unknown]
  - Limb discomfort [Unknown]
  - Rash [Unknown]
  - Dermatitis contact [Unknown]
  - Intentional product misuse [Unknown]
  - Off label use [Unknown]
